FAERS Safety Report 12859320 (Version 1)
Quarter: 2016Q4

REPORT INFORMATION
  Report Type: Spontaneous
  Country: KR (occurrence: KR)
  Receive Date: 20161018
  Receipt Date: 20161018
  Transmission Date: 20170207
  Serious: Yes (Other)
  Sender: FDA-Public Use
  Company Number: PHHY2016KR140982

PATIENT

DRUGS (2)
  1. EVEROLIMUS [Suspect]
     Active Substance: EVEROLIMUS
     Dosage: 5 MG, UNK
     Route: 065
     Dates: end: 20140324
  2. EVEROLIMUS [Suspect]
     Active Substance: EVEROLIMUS
     Indication: PRODUCT USED FOR UNKNOWN INDICATION
     Dosage: 10 MG, UNK
     Route: 065
     Dates: start: 20131223

REACTIONS (10)
  - Anaemia [Unknown]
  - Disease progression [Unknown]
  - Bone lesion [Unknown]
  - Interstitial lung disease [Unknown]
  - Stomatitis [Unknown]
  - Thrombocytopenia [Unknown]
  - Fatigue [Unknown]
  - Hepatotoxicity [Unknown]
  - Hyperglycaemia [Unknown]
  - Proteinuria [Unknown]
